APPROVED DRUG PRODUCT: ANSOLYSEN
Active Ingredient: PENTOLINIUM TARTRATE
Strength: 10MG/ML
Dosage Form/Route: INJECTABLE;INJECTION
Application: N009372 | Product #001
Applicant: WYETH AYERST LABORATORIES
Approved: Approved Prior to Jan 1, 1982 | RLD: No | RS: No | Type: DISCN